FAERS Safety Report 20188645 (Version 1)
Quarter: 2021Q4

REPORT INFORMATION
  Report Type: Spontaneous
  Country: US (occurrence: None)
  Receive Date: 20211215
  Receipt Date: 20211215
  Transmission Date: 20220304
  Serious: Yes (Other)
  Sender: FDA-Public Use
  Company Number: None

PATIENT
  Age: 29 Year
  Sex: Male
  Weight: 87 kg

DRUGS (1)
  1. CASIRIVIMAB\IMDEVIMAB [Suspect]
     Active Substance: CASIRIVIMAB\IMDEVIMAB
     Indication: COVID-19
     Dates: start: 20211215, end: 20211215

REACTIONS (6)
  - Feeling hot [None]
  - Joint injury [None]
  - Head injury [None]
  - Syncope [None]
  - Treatment noncompliance [None]
  - Sinus bradycardia [None]

NARRATIVE: CASE EVENT DATE: 20211215
